FAERS Safety Report 4283639-6 (Version None)
Quarter: 2004Q1

REPORT INFORMATION
  Report Type: 
  Country: None (occurrence: None)
  Receive Date: 20040115
  Receipt Date: 20030717
  Transmission Date: 20041129
  Serious: Yes (Death)
  Sender: FDA-Public Use
  Company Number: NSADSS2003013132

PATIENT
  Age: 71 Year
  Sex: Male

DRUGS (1)
  1. DOXIL [Suspect]
     Indication: NEOPLASM MALIGNANT
     Dosage: 100 MG, INTRAVENOUS DRIP
     Route: 041
     Dates: start: 20030122, end: 20030122

REACTIONS (1)
  - CONDITION AGGRAVATED [None]
